FAERS Safety Report 16728750 (Version 2)
Quarter: 2019Q3

REPORT INFORMATION
  Report Type: Spontaneous
  Country: US (occurrence: US)
  Receive Date: 20190822
  Receipt Date: 20190904
  Transmission Date: 20191005
  Serious: Yes (Life-Threatening, Hospitalization, Other)
  Sender: FDA-Public Use
  Company Number: US-BRISTOL-MYERS SQUIBB COMPANY-BMS-2019-081592

PATIENT
  Age: 85 Year
  Sex: Male
  Weight: 93.1 kg

DRUGS (5)
  1. APIXABAN [Suspect]
     Active Substance: APIXABAN
     Indication: CEREBROVASCULAR ACCIDENT PROPHYLAXIS
     Dosage: 2.5 MILLIGRAM, DAILY
     Route: 048
     Dates: start: 20190325
  2. CARVEDILOL. [Suspect]
     Active Substance: CARVEDILOL
     Indication: PRODUCT USED FOR UNKNOWN INDICATION
     Dosage: 3.125 MILLIGRAM, BID
     Route: 048
  3. LEUPROLIDE ACETATE. [Suspect]
     Active Substance: LEUPROLIDE ACETATE
     Indication: PROSTATE CANCER
     Dosage: 22.5 MILLIGRAM, Q3MO
     Route: 030
     Dates: start: 20180324
  4. AVELUMAB [Suspect]
     Active Substance: AVELUMAB
     Indication: PROSTATE CANCER
     Dosage: 10 MILLIGRAM/KILOGRAM, Q2WK
     Route: 042
     Dates: start: 20190118, end: 20190719
  5. CARVEDILOL. [Suspect]
     Active Substance: CARVEDILOL
     Indication: HYPERTENSION
     Dosage: 12.5 MILLIGRAM, BID
     Route: 048
     Dates: start: 20120613

REACTIONS (6)
  - Tremor [Unknown]
  - Anaemia [Recovered/Resolved]
  - Prescribed underdose [Unknown]
  - Bradycardia [Unknown]
  - Clostridium difficile infection [Unknown]
  - Hypotension [Unknown]

NARRATIVE: CASE EVENT DATE: 20190724
